FAERS Safety Report 24011656 (Version 1)
Quarter: 2024Q2

REPORT INFORMATION
  Report Type: Spontaneous
  Country: PL (occurrence: PL)
  Receive Date: 20240625
  Receipt Date: 20240625
  Transmission Date: 20240715
  Serious: Yes (Hospitalization, Other)
  Sender: FDA-Public Use
  Company Number: PL-GEN-2024-2123

PATIENT
  Age: 67 Year
  Sex: Female

DRUGS (7)
  1. SERTRALINE [Suspect]
     Active Substance: SERTRALINE HYDROCHLORIDE
     Indication: Insomnia
     Dosage: 100 MILLIGRAM, QD
     Route: 065
  2. LINEZOLID [Interacting]
     Active Substance: LINEZOLID
     Indication: Product used for unknown indication
     Dosage: 600 MILLIGRAM, BID (2 ? 600 MG)
     Route: 042
  3. PERAZINE [Suspect]
     Active Substance: PERAZINE
     Indication: Insomnia
     Dosage: 50 MILLIGRAM, QD (AT NIGHT)
     Route: 065
  4. FENOTEROL\IPRATROPIUM BROMIDE [Interacting]
     Active Substance: FENOTEROL\IPRATROPIUM BROMIDE
     Indication: Product used for unknown indication
     Dosage: UNK
     Route: 065
  5. CEFTRIAXONE [Concomitant]
     Active Substance: CEFTRIAXONE\CEFTRIAXONE SODIUM
     Dosage: 1 GRAM, BID (2 ? 1 G)
     Route: 042
  6. ERDOSTEINE [Concomitant]
     Active Substance: ERDOSTEINE
     Dosage: UNK
     Route: 065
  7. AMLODIPINE\PERINDOPRIL [Concomitant]
     Active Substance: AMLODIPINE\PERINDOPRIL
     Indication: Hypertension
     Dosage: 10+10 MG

REACTIONS (5)
  - C-reactive protein increased [Recovered/Resolved]
  - Pneumonia [Recovered/Resolved]
  - Pyrexia [Recovered/Resolved]
  - Serotonin syndrome [Recovered/Resolved]
  - Hyperhidrosis [Recovered/Resolved]
